FAERS Safety Report 10225693 (Version 2)
Quarter: 2014Q2

REPORT INFORMATION
  Report Type: Spontaneous
  Country: US (occurrence: US)
  Receive Date: 20140609
  Receipt Date: 20140609
  Transmission Date: 20141212
  Serious: Yes (Other)
  Sender: FDA-Public Use
  Company Number: US-ASTELLAS-2013US008411

PATIENT
  Sex: Male

DRUGS (4)
  1. PROGRAF [Suspect]
     Indication: HEART TRANSPLANT
     Dosage: 2MG AM, 1MG PM
     Route: 048
     Dates: start: 20080708
  2. PROGRAF [Suspect]
     Indication: PROPHYLAXIS
     Route: 048
  3. PROGRAF [Suspect]
     Indication: PROSTATE CANCER
  4. PROGRAF [Suspect]
     Indication: OVERDOSE

REACTIONS (3)
  - Renal failure [Unknown]
  - Blood urea increased [Unknown]
  - Off label use [Unknown]
